FAERS Safety Report 7117288-9 (Version None)
Quarter: 2010Q4

REPORT INFORMATION
  Report Type: 
  Country: None (occurrence: None)
  Receive Date: 20101112
  Receipt Date: 20101101
  Transmission Date: 20110411
  Serious: Yes (Death)
  Sender: FDA-Public Use
  Company Number: 2010MA004100

PATIENT
  Age: 45 Year
  Sex: Female

DRUGS (9)
  1. OXYCODONE HCL [Suspect]
  2. CODEINE SUL TAB [Suspect]
  3. ORAMORPH SR [Suspect]
  4. TEMAZEPAM [Suspect]
  5. AMITRIPTYLINE HYDROCHLORIDE [Suspect]
  6. TRAMADOL HYDROCHLORIDE [Suspect]
  7. FEVERALL [Suspect]
  8. CON MEDS [Concomitant]
  9. PREV MEDS [Concomitant]

REACTIONS (3)
  - ABDOMINAL PAIN UPPER [None]
  - DRUG TOXICITY [None]
  - OVERDOSE [None]
